FAERS Safety Report 23630815 (Version 2)
Quarter: 2024Q4

REPORT INFORMATION
  Report Type: Other
  Country: FR (occurrence: FR)
  Receive Date: 20240314
  Receipt Date: 20241125
  Transmission Date: 20250115
  Serious: Yes (Life-Threatening, Hospitalization)
  Sender: ZYDUS PHARM
  Company Number: None

PATIENT

DRUGS (3)
  1. LEVETIRACETAM [Suspect]
     Active Substance: LEVETIRACETAM
     Indication: Seizure prophylaxis
     Dosage: UNK
     Route: 048
     Dates: start: 20210204
  2. MIANSERIN HYDROCHLORIDE [Suspect]
     Active Substance: MIANSERIN HYDROCHLORIDE
     Indication: Insomnia
     Dosage: UNK
     Route: 048
     Dates: start: 20230721
  3. MIANSERIN HYDROCHLORIDE [Suspect]
     Active Substance: MIANSERIN HYDROCHLORIDE
     Indication: Anxiety

REACTIONS (6)
  - Hepatic encephalopathy [Recovered/Resolved]
  - Hepatic encephalopathy [Recovered/Resolved]
  - Hepatic encephalopathy [Recovered/Resolved]
  - Hepatic encephalopathy [Recovered/Resolved]
  - Hepatic encephalopathy [Recovered/Resolved]
  - Hepatic encephalopathy [Recovered/Resolved]

NARRATIVE: CASE EVENT DATE: 20210227
